FAERS Safety Report 7669923-4 (Version None)
Quarter: 2011Q3

REPORT INFORMATION
  Report Type: 
  Country: None (occurrence: None)
  Receive Date: 20110808
  Receipt Date: 20110728
  Transmission Date: 20111222
  Serious: Yes (Other)
  Sender: FDA-Public Use
  Company Number: PHEH2008US06596

PATIENT
  Sex: Male

DRUGS (28)
  1. ZOMETA [Suspect]
     Indication: BONE DISORDER
     Dates: start: 20020606
  2. ASPIRIN [Concomitant]
  3. GLUCOVANCE [Concomitant]
  4. AMOXICILLIN [Concomitant]
     Dosage: 500 MG, QD
     Route: 048
  5. FISH OIL [Concomitant]
     Dosage: 1000 MG, QD
  6. RANITIDINE [Concomitant]
  7. LIPITOR [Concomitant]
  8. CELEXA [Concomitant]
     Dosage: 60 MG, QHS
  9. FELDENE [Concomitant]
  10. AMITRIPTYLINE HCL [Concomitant]
  11. GLUCOSAMINE [Concomitant]
     Dosage: 500 MG, TID
  12. ASPIRIN [Concomitant]
     Dosage: 81 MG, QD
     Route: 048
  13. LANSOPRAZOLE [Concomitant]
     Dosage: 30 MG, QD
     Route: 048
  14. FOSAMAX [Suspect]
     Dates: start: 20010101, end: 20020201
  15. LISINOPRIL [Concomitant]
  16. PLENDIL [Concomitant]
     Dosage: 5 MG, QD
  17. AREDIA [Suspect]
     Indication: BONE DISORDER
     Dates: end: 20020101
  18. PLAVIX [Concomitant]
  19. GLUCOSAMINE SULFATE [Concomitant]
     Dosage: 750 MG, BID
  20. TOPROL-XL [Concomitant]
  21. MEXITIL [Concomitant]
     Dosage: 150 MG, TID
  22. LIPITOR [Concomitant]
     Dosage: 40 MG, QD
     Route: 048
  23. MULTI-VITAMINS [Concomitant]
     Route: 048
  24. LASIX [Concomitant]
  25. NAPROSYN [Concomitant]
     Dosage: 500 MG, PRN
  26. BENADRYL [Concomitant]
  27. GARLIC [Concomitant]
     Dosage: 500 MG, BID
     Route: 048
  28. CELEBREX [Concomitant]
     Dosage: 200 MG, QD

REACTIONS (33)
  - ARTHRALGIA [None]
  - BLADDER CANCER [None]
  - BRONCHITIS [None]
  - LYMPHADENITIS [None]
  - PATHOLOGICAL FRACTURE [None]
  - ORAL CAVITY FISTULA [None]
  - ABSCESS [None]
  - ANEURYSM [None]
  - PULMONARY HYPERTENSION [None]
  - INJURY [None]
  - DYSLIPIDAEMIA [None]
  - CARDIAC FAILURE CONGESTIVE [None]
  - DILATATION ATRIAL [None]
  - CARDIOMYOPATHY [None]
  - LEFT VENTRICULAR HYPERTROPHY [None]
  - NEUROPATHY PERIPHERAL [None]
  - OSTEONECROSIS OF JAW [None]
  - GASTROOESOPHAGEAL REFLUX DISEASE [None]
  - ATRIAL FIBRILLATION [None]
  - MYOCARDIAL INFARCTION [None]
  - DYSPNOEA [None]
  - PAIN [None]
  - DECREASED INTEREST [None]
  - HERPES ZOSTER [None]
  - MITRAL VALVE INCOMPETENCE [None]
  - EJECTION FRACTION DECREASED [None]
  - OEDEMA PERIPHERAL [None]
  - ANXIETY [None]
  - PERIODONTITIS [None]
  - OSTEOPOROSIS [None]
  - PULMONARY EMBOLISM [None]
  - HYPERPLASIA [None]
  - NEOPLASM MALIGNANT [None]
